FAERS Safety Report 12250432 (Version 7)
Quarter: 2018Q1

REPORT INFORMATION
  Report Type: Spontaneous
  Country: KR (occurrence: KR)
  Receive Date: 20160408
  Receipt Date: 20180117
  Transmission Date: 20180508
  Serious: Yes (Hospitalization, Other)
  Sender: FDA-Public Use
  Company Number: KR-009507513-1602KOR008462

PATIENT
  Age: 54 Year
  Sex: Male
  Weight: 76 kg

DRUGS (11)
  1. OMACOR [Concomitant]
     Active Substance: OMEGA-3-ACID ETHYL ESTERS
     Indication: DYSLIPIDAEMIA
     Dosage: 1 CAPSULE, DAILY
     Route: 048
     Dates: start: 20110817
  2. CLOPIRIN [Concomitant]
     Dosage: 1 CAPSULE, DAILY
     Route: 048
     Dates: start: 20160120
  3. FLUDEX (INDAPAMIDE) [Concomitant]
     Active Substance: INDAPAMIDE
     Indication: ESSENTIAL HYPERTENSION
     Dosage: 1.5 MG, QD
     Route: 048
     Dates: start: 20150304
  4. GLAFORMIN XR [Concomitant]
     Indication: TYPE 2 DIABETES MELLITUS
     Dosage: 500 MG, QD
     Route: 048
     Dates: start: 20131113
  5. ATOZET [Suspect]
     Active Substance: ATORVASTATIN CALCIUM\EZETIMIBE
     Indication: DYSLIPIDAEMIA
     Dosage: 1 TABLET (10/10 MG) ONCE DAILY
     Route: 048
     Dates: start: 20150916
  6. CLOPIRIN [Concomitant]
     Indication: THROMBOSIS PROPHYLAXIS
     Dosage: 1 CAPSULE, DAILY
     Route: 048
     Dates: start: 20140514, end: 20160120
  7. DEXILANT [Concomitant]
     Active Substance: DEXLANSOPRAZOLE
     Indication: PROPHYLAXIS AGAINST GASTROINTESTINAL ULCER
     Dosage: 30 MG, QD
     Route: 048
     Dates: start: 20150304
  8. VASTINAN [Concomitant]
     Indication: ANGINA UNSTABLE
     Dosage: 35 MG, TWICE A DAY
     Route: 048
     Dates: start: 20150610
  9. TEGRETOL [Concomitant]
     Active Substance: CARBAMAZEPINE
     Indication: TRIGEMINAL NEURALGIA
     Dosage: 200 MG, BID
     Route: 048
     Dates: start: 20081105
  10. DIOVAN [Concomitant]
     Active Substance: VALSARTAN
     Indication: ESSENTIAL HYPERTENSION
     Dosage: 160 MG, QD
     Route: 048
     Dates: start: 20150304
  11. NEBILET [Concomitant]
     Active Substance: NEBIVOLOL
     Indication: ESSENTIAL HYPERTENSION
     Dosage: 5.45 MG, QD
     Route: 048
     Dates: start: 20110209

REACTIONS (2)
  - Bronchitis [Recovered/Resolved]
  - Atypical mycobacterial infection [Recovered/Resolved]

NARRATIVE: CASE EVENT DATE: 20160116
